FAERS Safety Report 6882632-4 (Version None)
Quarter: 2010Q3

REPORT INFORMATION
  Report Type: 
  Country: None (occurrence: None)
  Receive Date: 20100729
  Receipt Date: 20100720
  Transmission Date: 20110219
  Serious: Yes (Hospitalization)
  Sender: FDA-Public Use
  Company Number: US-ROCHE-715830

PATIENT
  Sex: Female
  Weight: 127.9 kg

DRUGS (1)
  1. ACTEMRA [Suspect]
     Dosage: FORM: INFUSION, 7TH DOSE, DATE OF LAST DOSE PRIOR TO SAE: 08 JULY 2010
     Route: 042

REACTIONS (1)
  - CONVULSION [None]
